FAERS Safety Report 15819279 (Version 2)
Quarter: 2019Q1

REPORT INFORMATION
  Report Type: Spontaneous
  Country: NO (occurrence: NO)
  Receive Date: 20190114
  Receipt Date: 20190114
  Transmission Date: 20190417
  Serious: Yes (Other)
  Sender: FDA-Public Use
  Company Number: NO-TAKEDA-2019TEU000319

PATIENT
  Age: 66 Year
  Sex: Female

DRUGS (11)
  1. ALLOPUR [Suspect]
     Active Substance: ALLOPURINOL
     Indication: GOUTY ARTHRITIS
     Dosage: 100 MG, QD
     Route: 048
     Dates: start: 20181016, end: 20181024
  2. CALCIGRAN FORTE [Concomitant]
     Active Substance: CALCIUM CARBONATE\CHOLECALCIFEROL
     Dosage: UNK
  3. RANITIDINE. [Concomitant]
     Active Substance: RANITIDINE
     Dosage: UNK
  4. MAREVAN [Concomitant]
     Active Substance: WARFARIN SODIUM
     Dosage: UNK
  5. VAGIFEM [Concomitant]
     Active Substance: ESTRADIOL
     Dosage: UNK
  6. STILNOCT [Concomitant]
     Active Substance: ZOLPIDEM TARTRATE
     Dosage: UNK
  7. ADALAT [Concomitant]
     Active Substance: NIFEDIPINE
     Dosage: UNK
  8. COZAAR COMP [Concomitant]
     Active Substance: HYDROCHLOROTHIAZIDE\LOSARTAN POTASSIUM
     Dosage: UNK
  9. COLCHICINE. [Suspect]
     Active Substance: COLCHICINE
     Indication: GOUTY ARTHRITIS
     Dosage: 0.5 MG, QD
     Route: 048
     Dates: start: 20181018, end: 20181024
  10. PARALGIN FORTE                     /00116401/ [Concomitant]
     Dosage: UNK
  11. VALIUM [Concomitant]
     Active Substance: DIAZEPAM
     Dosage: UNK

REACTIONS (2)
  - Rash pruritic [Recovered/Resolved]
  - International normalised ratio increased [Recovered/Resolved]

NARRATIVE: CASE EVENT DATE: 201810
